FAERS Safety Report 13065874 (Version 3)
Quarter: 2017Q1

REPORT INFORMATION
  Report Type: Spontaneous
  Country: US (occurrence: US)
  Receive Date: 20161227
  Receipt Date: 20170223
  Transmission Date: 20170428
  Serious: No
  Sender: FDA-Public Use
  Company Number: US-GLAXOSMITHKLINE-US2016189415

PATIENT
  Age: 86 Year
  Sex: Female

DRUGS (1)
  1. TRANSDERM SCOP [Suspect]
     Active Substance: SCOPOLAMINE
     Indication: DIZZINESS
     Dosage: UNK
     Dates: start: 201609

REACTIONS (5)
  - Product use issue [Unknown]
  - Incorrect drug administration duration [Unknown]
  - Dry mouth [Recovered/Resolved]
  - Application site reaction [Recovered/Resolved]
  - Product quality issue [Unknown]

NARRATIVE: CASE EVENT DATE: 201609
